FAERS Safety Report 5320068-8 (Version None)
Quarter: 2007Q1

REPORT INFORMATION
  Report Type: 
  Country: None (occurrence: None)
  Receive Date: 20070215
  Receipt Date: 20060309
  Transmission Date: 20070707
  Serious: No
  Sender: FDA-Public Use
  Company Number: MC200600196

PATIENT
  Age: 83 Year
  Sex: Female
  Weight: 72.1 kg

DRUGS (4)
  1. ANGIOMAX [Suspect]
     Indication: CORONARY ANGIOPLASTY
     Dosage: SEE IMAGE
     Route: 040
     Dates: start: 20060309, end: 20060309
  2. ANGIOMAX [Suspect]
     Indication: CORONARY ANGIOPLASTY
     Dosage: SEE IMAGE
     Route: 040
     Dates: start: 20060309
  3. ANGIOMAX [Suspect]
  4. ANGIOMAX [Suspect]

REACTIONS (1)
  - CORONARY ARTERY THROMBOSIS [None]
